FAERS Safety Report 8045312-8 (Version None)
Quarter: 2012Q1

REPORT INFORMATION
  Report Type: 
  Country: None (occurrence: None)
  Receive Date: 20120110
  Receipt Date: 20111230
  Transmission Date: 20120608
  Serious: Yes (Hospitalization)
  Sender: FDA-Public Use
  Company Number: 2011HGS-003057

PATIENT
  Age: 26 Year
  Sex: Female
  Weight: 89.3586 kg

DRUGS (9)
  1. NORVASC [Concomitant]
  2. ABILIFY (ARIPIPRAZOLE) (ARIPIPRAZOLE) [Concomitant]
  3. PLAQUENIL (HYDROXYCHLOROQUINE SULFATE) (IHYDROXIYCHLOROQUINE SULFATE) [Concomitant]
  4. PREDNISONE [Concomitant]
  5. IMURAN [Concomitant]
  6. FLEXERIL (CYCLOBENZAPRINE HYDROCHLORIDE) (CYCLOBENZAPRINE HYDROCHLORID [Concomitant]
  7. MOTRIN [Concomitant]
  8. BENLYSTA [Suspect]
     Indication: SYSTEMIC LUPUS ERYTHEMATOSUS
     Dosage: 10 MG/KG, 1 IN 28 D, INTRAVENOUS DRIP
     Route: 041
     Dates: start: 20110627
  9. CELLCEPT (MYCOPHENOLATE MOFETIL) (MYCOPHENOLATE MOFETIL [Concomitant]

REACTIONS (2)
  - CONDITION AGGRAVATED [None]
  - PERICARDITIS [None]
